FAERS Safety Report 5401911-0 (Version None)
Quarter: 2007Q3

REPORT INFORMATION
  Report Type: 
  Country: None (occurrence: None)
  Receive Date: 20070726
  Receipt Date: 20070718
  Transmission Date: 20080115
  Serious: Yes (Other)
  Sender: FDA-Public Use
  Company Number: TCI2007A03529

PATIENT
  Age: 70 Year
  Sex: Female

DRUGS (6)
  1. ACTOS TABLETS 15 (PIOGLITAZONE HYDROCHLORIDE) [Suspect]
     Indication: TYPE 2 DIABETES MELLITUS
     Dosage: 30 MG (30 MG, 1D); 15 MG (15 MG, 1 D); 15 MG(15 MG, 1 IN 1 D) PER ORAL
     Route: 048
     Dates: start: 20070501, end: 20070501
  2. ACTOS TABLETS 15 (PIOGLITAZONE HYDROCHLORIDE) [Suspect]
     Indication: TYPE 2 DIABETES MELLITUS
     Dosage: 30 MG (30 MG, 1D); 15 MG (15 MG, 1 D); 15 MG(15 MG, 1 IN 1 D) PER ORAL
     Route: 048
     Dates: start: 20070717, end: 20070717
  3. ACTOS TABLETS 15 (PIOGLITAZONE HYDROCHLORIDE) [Suspect]
     Indication: TYPE 2 DIABETES MELLITUS
     Dosage: 30 MG (30 MG, 1D); 15 MG (15 MG, 1 D); 15 MG(15 MG, 1 IN 1 D) PER ORAL
     Route: 048
     Dates: start: 20070501
  4. BASEN (VOGLIBOSE) [Suspect]
     Indication: TYPE 2 DIABETES MELLITUS
     Dosage: PER ORAL
     Route: 048
     Dates: start: 20070301, end: 20070501
  5. EUGLUCOM(GLIBENCLAMIDE) [Concomitant]
  6. NATEGLINIDE [Concomitant]

REACTIONS (2)
  - ANAPHYLACTIC SHOCK [None]
  - DRUG HYPERSENSITIVITY [None]
